FAERS Safety Report 5652271-1 (Version None)
Quarter: 2008Q1

REPORT INFORMATION
  Report Type: 
  Country: None (occurrence: None)
  Receive Date: 20080305
  Receipt Date: 20080211
  Transmission Date: 20080703
  Serious: No
  Sender: FDA-Public Use
  Company Number: US-BOEHRINGER INGELHEIM GMBH, GERMANY-2008-BP-02076BP

PATIENT
  Age: 80 Year
  Sex: Female

DRUGS (3)
  1. ZANTAC 150 [Suspect]
     Indication: GASTROOESOPHAGEAL REFLUX DISEASE
     Route: 048
     Dates: start: 20080210, end: 20080210
  2. DITROPAN [Concomitant]
     Indication: POLLAKIURIA
  3. KLONOPIN [Concomitant]
     Indication: ANXIETY

REACTIONS (2)
  - BACK PAIN [None]
  - FATIGUE [None]
